FAERS Safety Report 21776584 (Version 1)
Quarter: 2022Q4

REPORT INFORMATION
  Report Type: Spontaneous
  Country: US (occurrence: US)
  Receive Date: 20221226
  Receipt Date: 20221226
  Transmission Date: 20230113
  Serious: No
  Sender: FDA-Public Use
  Company Number: US-SANOFI-01401221

PATIENT
  Sex: Female

DRUGS (3)
  1. APIDRA [Suspect]
     Active Substance: INSULIN GLULISINE
     Indication: Type 1 diabetes mellitus
  2. MEDROL [Concomitant]
     Active Substance: METHYLPREDNISOLONE
  3. LEVOCETIRIZINE DIHYDROCHLORIDE [Concomitant]
     Active Substance: LEVOCETIRIZINE DIHYDROCHLORIDE
     Dosage: UNK

REACTIONS (5)
  - Insomnia [Unknown]
  - Abnormal dreams [Unknown]
  - Eye swelling [Unknown]
  - Malaise [Unknown]
  - Swelling of eyelid [Unknown]
